FAERS Safety Report 8844528 (Version 1)
Quarter: 2012Q4

REPORT INFORMATION
  Report Type: Spontaneous
  Country: DK (occurrence: None)
  Receive Date: 20121012
  Receipt Date: 20121012
  Transmission Date: 20130627
  Serious: Yes (Disabling)
  Sender: FDA-Public Use
  Company Number: 2012MA012037

PATIENT
  Sex: Male

DRUGS (6)
  1. DOXAZOSIN MESYLATE [Suspect]
     Indication: ESSENTIAL HYPERTENSION
     Route: 048
     Dates: start: 20120415, end: 20120416
  2. AMLODIPINE [Concomitant]
  3. INDAPAMIDE [Concomitant]
  4. OLANZAPINE [Concomitant]
  5. ANTIHYPERTENSIVES [Concomitant]
  6. RAMIPRIL [Concomitant]

REACTIONS (8)
  - Arrhythmia [None]
  - Abdominal pain upper [None]
  - Diarrhoea [None]
  - Dizziness [None]
  - Oxygen saturation decreased [None]
  - Blood pressure increased [None]
  - Drug withdrawal syndrome [None]
  - Heart rate increased [None]
